FAERS Safety Report 5601054-7 (Version None)
Quarter: 2008Q1

REPORT INFORMATION
  Report Type: 
  Country: None (occurrence: None)
  Receive Date: 20080107
  Receipt Date: 20070724
  Transmission Date: 20080703
  Serious: Yes (Other)
  Sender: FDA-Public Use
  Company Number: IMP_03058_2007

PATIENT
  Sex: Female
  Weight: 63.5036 kg

DRUGS (4)
  1. OMEPRAZOLE [Suspect]
     Indication: DRUG USE FOR UNKNOWN INDICATION
     Dosage: (20 MG QD)
     Dates: start: 20070623, end: 20070725
  2. CENTRUM SILVER [Concomitant]
  3. CALCIUM [Concomitant]
  4. DIGESTIVE ADVANTAGE [Concomitant]

REACTIONS (4)
  - ABDOMINAL PAIN UPPER [None]
  - DIARRHOEA [None]
  - HEADACHE [None]
  - NAUSEA [None]
